FAERS Safety Report 20016862 (Version 1)
Quarter: 2021Q4

REPORT INFORMATION
  Report Type: Spontaneous
  Country: US (occurrence: None)
  Receive Date: 20211104
  Receipt Date: 20211104
  Transmission Date: 20220303
  Serious: Yes (Other)
  Sender: FDA-Public Use
  Company Number: None

PATIENT
  Age: 58 Year
  Sex: Male

DRUGS (2)
  1. CABOMETYX [Suspect]
     Active Substance: CABOZANTINIB S-MALATE
     Indication: Head and neck cancer
     Dosage: FREQUENCY : DAILY;?
     Route: 048
     Dates: start: 20210719, end: 20210720
  2. CABOMETYX [Suspect]
     Active Substance: CABOZANTINIB S-MALATE
     Indication: Head and neck cancer
     Dosage: FREQUENCY : DAILY;?
     Route: 048
     Dates: start: 20210903, end: 20211018

REACTIONS (5)
  - Abdominal pain upper [None]
  - Decreased appetite [None]
  - Infection [None]
  - Haemorrhage [None]
  - Therapy change [None]
